FAERS Safety Report 24297107 (Version 2)
Quarter: 2024Q4

REPORT INFORMATION
  Report Type: Spontaneous
  Country: DE (occurrence: DE)
  Receive Date: 20240909
  Receipt Date: 20241224
  Transmission Date: 20250114
  Serious: Yes (Hospitalization)
  Sender: AUROBINDO
  Company Number: DE-002147023-NVSC2022DE283991

PATIENT
  Sex: Female

DRUGS (9)
  1. CELECOXIB [Suspect]
     Active Substance: CELECOXIB
     Indication: Product used for unknown indication
     Dosage: 200 MG, 2 DAYS PER WEEK
     Route: 065
  2. CELECOXIB [Suspect]
     Active Substance: CELECOXIB
     Dosage: 400 MILLIGRAM, EVERY WEEK (200 MG, 2 DAYS PER WEEK)
     Route: 065
  3. CELECOXIB [Suspect]
     Active Substance: CELECOXIB
     Dosage: 400 MILLIGRAM, EVERY WEEK (200 MG, 2 DAYS PER WEEK)
     Route: 065
     Dates: start: 20210427
  4. CELECOXIB [Suspect]
     Active Substance: CELECOXIB
     Dosage: 200 MG, 2 DAYS PER WEEK
     Route: 065
     Dates: start: 20210915, end: 20220220
  5. CELECOXIB [Suspect]
     Active Substance: CELECOXIB
     Dosage: 200 MG, 2 DAYS PER WEEK
     Route: 065
     Dates: start: 20221014
  6. CELECOXIB [Suspect]
     Active Substance: CELECOXIB
     Dosage: 400 MILLIGRAM, EVERY WEEK (200 MG, 2 DAYS PER WEEK)
     Route: 065
     Dates: start: 20211014
  7. BIMZELX [Suspect]
     Active Substance: BIMEKIZUMAB-BKZX
     Indication: Product used for unknown indication
     Dosage: 160 MG, Q4W
     Route: 065
  8. ERELZI [Suspect]
     Active Substance: ETANERCEPT-SZZS
     Indication: Axial spondyloarthritis
     Dosage: EVERY WEEK 50 UNK, QW
     Route: 065
     Dates: start: 20220111, end: 20240219
  9. ERELZI [Suspect]
     Active Substance: ETANERCEPT-SZZS
     Dosage: 50 MILLIGRAM
     Route: 065
     Dates: start: 20210420, end: 20220927

REACTIONS (6)
  - Osteoarthritis [Not Recovered/Not Resolved]
  - Immunisation reaction [Unknown]
  - Injection site erythema [Unknown]
  - Localised infection [Unknown]
  - Noninfective gingivitis [Unknown]
  - COVID-19 [Unknown]

NARRATIVE: CASE EVENT DATE: 20220201
